FAERS Safety Report 12219637 (Version 1)
Quarter: 2016Q1

REPORT INFORMATION
  Report Type: Report from Study
  Country: US (occurrence: US)
  Receive Date: 20160330
  Receipt Date: 20160330
  Transmission Date: 20160526
  Serious: No
  Sender: FDA-Public Use
  Company Number: PHEH2014US014291

PATIENT
  Age: 11 Year
  Sex: Male

DRUGS (5)
  1. AFINITOR [Suspect]
     Active Substance: EVEROLIMUS
     Dosage: 5 MG, QD
     Route: 048
     Dates: start: 20141224, end: 20150209
  2. AFINITOR [Suspect]
     Active Substance: EVEROLIMUS
     Indication: GANGLIOGLIOMA
     Dosage: 5 MG, QD
     Route: 048
     Dates: start: 20140520, end: 20140919
  3. DEPAKOTE [Concomitant]
     Active Substance: DIVALPROEX SODIUM
     Indication: PRODUCT USED FOR UNKNOWN INDICATION
     Dosage: UNK
     Route: 065
  4. AFINITOR [Suspect]
     Active Substance: EVEROLIMUS
     Dosage: 5 MG, QD
     Route: 065
  5. KEPPRA [Concomitant]
     Active Substance: LEVETIRACETAM
     Indication: PRODUCT USED FOR UNKNOWN INDICATION
     Dosage: UNK
     Route: 065

REACTIONS (8)
  - Nasopharyngitis [Recovering/Resolving]
  - Ear infection [Recovering/Resolving]
  - Influenza [Recovered/Resolved]
  - Oral pain [Recovered/Resolved]
  - Sinusitis [Recovering/Resolving]
  - Hordeolum [Unknown]
  - Gastroenteritis viral [Recovered/Resolved]
  - Malaise [Unknown]

NARRATIVE: CASE EVENT DATE: 20140619
